FAERS Safety Report 17765492 (Version 1)
Quarter: 2020Q2

REPORT INFORMATION
  Report Type: Spontaneous
  Country: US (occurrence: US)
  Receive Date: 20200509
  Receipt Date: 20200509
  Transmission Date: 20200714
  Serious: Yes (Other)
  Sender: FDA-Public Use
  Company Number: None

PATIENT
  Age: 70 Year
  Sex: Male

DRUGS (7)
  1. KRYSTEXXA [Suspect]
     Active Substance: PEGLOTICASE
     Indication: BLOOD URIC ACID INCREASED
     Dates: start: 20200101, end: 20200312
  2. TOMSULSIN [Concomitant]
  3. ALLOPURINOL. [Concomitant]
     Active Substance: ALLOPURINOL
  4. XARELTO [Concomitant]
     Active Substance: RIVAROXABAN
  5. XANEX [Concomitant]
  6. FINSTERIDE [Concomitant]
  7. ONE DAY MULTIPLE VITAMIB [Concomitant]

REACTIONS (1)
  - Gout [None]

NARRATIVE: CASE EVENT DATE: 20200101
